FAERS Safety Report 19949398 (Version 1)
Quarter: 2021Q4

REPORT INFORMATION
  Report Type: Spontaneous
  Country: US (occurrence: US)
  Receive Date: 20211012
  Receipt Date: 20211012
  Transmission Date: 20220303
  Serious: No
  Sender: FDA-Public Use
  Company Number: None

PATIENT
  Age: 59 Year
  Sex: Female
  Weight: 55.8 kg

DRUGS (16)
  1. EVEROLIMUS [Suspect]
     Active Substance: EVEROLIMUS
     Indication: Breast cancer
     Route: 048
     Dates: start: 20210917
  2. ALBUTEROL SULFATE [Concomitant]
     Active Substance: ALBUTEROL SULFATE
  3. ALPRAZOLAM [Concomitant]
     Active Substance: ALPRAZOLAM
  4. BENZONATATE [Concomitant]
     Active Substance: BENZONATATE
  5. CLARITIN [Concomitant]
     Active Substance: LORATADINE
  6. CYCLOBENZAPRINE [Concomitant]
     Active Substance: CYCLOBENZAPRINE
  7. EFFEXOR [Concomitant]
     Active Substance: VENLAFAXINE HYDROCHLORIDE
  8. ESOMEPRAZOLE. [Concomitant]
     Active Substance: ESOMEPRAZOLE MAGNESIUM
  9. GABAPENTIN [Concomitant]
     Active Substance: GABAPENTIN
  10. HYDROMORPHONE [Concomitant]
     Active Substance: HYDROMORPHONE
  11. LOSARTAN [Concomitant]
     Active Substance: LOSARTAN
  12. VITAMINS [Concomitant]
     Active Substance: VITAMINS
  13. NALOXONE [Concomitant]
     Active Substance: NALOXONE
  14. OMEGA-3 FATTY ACIDS [Concomitant]
     Active Substance: OMEGA-3 FATTY ACIDS
  15. ONDANSETRON [Concomitant]
     Active Substance: ONDANSETRON
  16. XGEVA [Concomitant]
     Active Substance: DENOSUMAB

REACTIONS (3)
  - Pain in jaw [None]
  - Teething [None]
  - Therapy interrupted [None]

NARRATIVE: CASE EVENT DATE: 20210920
